FAERS Safety Report 4719947-1 (Version None)
Quarter: 2005Q3

REPORT INFORMATION
  Report Type: 
  Country: None (occurrence: None)
  Receive Date: 20050721
  Receipt Date: 20050208
  Transmission Date: 20060218
  Serious: No
  Sender: FDA-Public Use
  Company Number: US-GLAXOSMITHKLINE-A0544504A

PATIENT
  Age: 81 Year
  Sex: Female

DRUGS (9)
  1. AVANDIA [Suspect]
     Dosage: 4MG PER DAY
     Route: 048
     Dates: start: 20041201
  2. COZAAR [Concomitant]
  3. DIAZIDE [Concomitant]
  4. ALEVE [Concomitant]
  5. THEOPHYLLINE [Concomitant]
  6. PROVENTIL [Concomitant]
  7. FLOVENT [Concomitant]
  8. EYE DROPS [Concomitant]
     Indication: GLAUCOMA
     Route: 047
  9. ICAPS [Concomitant]

REACTIONS (3)
  - CHROMATURIA [None]
  - OEDEMA PERIPHERAL [None]
  - WEIGHT INCREASED [None]
